FAERS Safety Report 6279027-3 (Version None)
Quarter: 2009Q3

REPORT INFORMATION
  Report Type: 
  Country: None (occurrence: None)
  Receive Date: 20090723
  Receipt Date: 20090715
  Transmission Date: 20100115
  Serious: Yes (Other)
  Sender: FDA-Public Use
  Company Number: JP-ELI_LILLY_AND_COMPANY-JP200907003551

PATIENT
  Age: 64 Year
  Sex: Female

DRUGS (8)
  1. GEMZAR [Suspect]
     Indication: LUNG ADENOCARCINOMA
     Route: 042
  2. CISPLATIN [Concomitant]
     Indication: LUNG ADENOCARCINOMA STAGE III
     Dosage: UNK, UNK
     Route: 042
     Dates: start: 20040101
  3. VINORELBINE /00988502/ [Concomitant]
     Indication: LUNG ADENOCARCINOMA STAGE III
     Dosage: UNK, UNK
     Route: 042
     Dates: start: 20040101
  4. GEFITINIB [Concomitant]
     Indication: LUNG ADENOCARCINOMA
     Route: 048
  5. CARBOPLATIN [Concomitant]
     Indication: LUNG ADENOCARCINOMA
     Route: 042
  6. PACLITAXEL [Concomitant]
     Indication: LUNG ADENOCARCINOMA
     Route: 042
  7. IRINOTECAN HYDROCHLORIDE [Concomitant]
     Indication: LUNG ADENOCARCINOMA
     Route: 042
  8. TAXOTERE [Concomitant]
     Indication: LUNG ADENOCARCINOMA
     Dosage: UNK, UNK
     Route: 042
     Dates: start: 20080601, end: 20090101

REACTIONS (3)
  - ACUTE MYELOID LEUKAEMIA [None]
  - FUNGAL INFECTION [None]
  - HYPOXIA [None]
